FAERS Safety Report 9816798 (Version 1)
Quarter: 2014Q1

REPORT INFORMATION
  Report Type: Spontaneous
  Country: US (occurrence: US)
  Receive Date: 20140114
  Receipt Date: 20140114
  Transmission Date: 20141002
  Serious: No
  Sender: FDA-Public Use
  Company Number: US-009507513-1401USA001844

PATIENT
  Sex: Female

DRUGS (1)
  1. IMPLANON [Suspect]
     Dosage: 1 ROD
     Route: 030
     Dates: start: 201101

REACTIONS (4)
  - Device deployment issue [Unknown]
  - Incorrect route of drug administration [Unknown]
  - Incorrect drug administration duration [Unknown]
  - No adverse event [Unknown]
